FAERS Safety Report 5511622-9 (Version None)
Quarter: 2007Q4

REPORT INFORMATION
  Report Type: 
  Country: None (occurrence: None)
  Receive Date: 20071109
  Receipt Date: 20071029
  Transmission Date: 20080405
  Serious: Yes (Other)
  Sender: FDA-Public Use
  Company Number: US-PFIZER INC-2007092065

PATIENT
  Sex: Female
  Weight: 54.545 kg

DRUGS (4)
  1. CHANTIX [Suspect]
     Indication: SMOKING CESSATION THERAPY
     Route: 048
     Dates: start: 20070301, end: 20070301
  2. ADVAIR DISKUS 100/50 [Concomitant]
     Indication: ASTHMA
     Route: 055
  3. XANAX [Concomitant]
     Indication: PANIC DISORDER
     Route: 048
  4. LEXAPRO [Concomitant]
     Indication: PANIC DISORDER
     Route: 048

REACTIONS (4)
  - ABNORMAL DREAMS [None]
  - MIDDLE INSOMNIA [None]
  - NIGHTMARE [None]
  - PANIC ATTACK [None]
